FAERS Safety Report 10426081 (Version 2)
Quarter: 2014Q4

REPORT INFORMATION
  Report Type: Spontaneous
  Country: GB (occurrence: GB)
  Receive Date: 20140903
  Receipt Date: 20141107
  Transmission Date: 20150528
  Serious: Yes (Other)
  Sender: FDA-Public Use
  Company Number: GB-BRISTOL-MYERS SQUIBB COMPANY-21334453

PATIENT
  Age: 70 Year
  Sex: Male

DRUGS (1)
  1. FORXIGA [Suspect]
     Active Substance: DAPAGLIFLOZIN
     Dates: start: 20130325

REACTIONS (1)
  - Psoriasis [Unknown]
